FAERS Safety Report 6379705-1 (Version None)
Quarter: 2009Q3

REPORT INFORMATION
  Report Type: 
  Country: None (occurrence: None)
  Receive Date: 20090928
  Receipt Date: 20090918
  Transmission Date: 20100115
  Serious: Yes (Hospitalization, Other)
  Sender: FDA-Public Use
  Company Number: BR-ELI_LILLY_AND_COMPANY-BR200907005020

PATIENT
  Sex: Female
  Weight: 67 kg

DRUGS (4)
  1. FORTEO [Suspect]
     Indication: OSTEOPOROSIS
     Dosage: 20 UG, DAILY (1/D)
     Route: 058
     Dates: start: 20060101, end: 20090201
  2. FORTEO [Suspect]
     Dosage: 20 UG, DAILY (1/D)
     Route: 058
     Dates: start: 20090801
  3. SYNTHROID [Concomitant]
     Indication: THYROID DISORDER
     Dosage: 125 UG, DAILY (1/D)
     Route: 065
  4. ATENOL [Concomitant]
     Indication: BLOOD PRESSURE ABNORMAL
     Dosage: 25 MG, DAILY (1/D)
     Route: 065

REACTIONS (6)
  - ABDOMINAL PAIN [None]
  - COLITIS [None]
  - INTESTINAL POLYP [None]
  - NERVOUSNESS [None]
  - NODULE [None]
  - THYROID CANCER [None]
